FAERS Safety Report 8788834 (Version 4)
Quarter: 2013Q1

REPORT INFORMATION
  Report Type: Report from Study
  Country: JP (occurrence: JP)
  Receive Date: 20120916
  Receipt Date: 20130207
  Transmission Date: 20140127
  Serious: Yes (Hospitalization, Other)
  Sender: FDA-Public Use
  Company Number: JP-009507513-2012SP025029

PATIENT
  Age: 62 Year
  Sex: Male
  Weight: 68 kg

DRUGS (20)
  1. PEGINTRON [Suspect]
     Indication: CHRONIC HEPATITIS C
     Dosage: 1.5 MICROGRAM PER KILOGRAM, QW
     Route: 058
     Dates: start: 20120305, end: 20120416
  2. PEGINTRON [Suspect]
     Dosage: 1.3 MICROGRAM PER KILOGRAM, QW
     Route: 058
     Dates: start: 20120423, end: 20120521
  3. PEGINTRON [Suspect]
     Dosage: 0.89 MICROGRAM PER KILOGRAM, QW
     Route: 058
     Dates: start: 20120522, end: 20120604
  4. PEGINTRON [Suspect]
     Dosage: 0.44 MICROGRAM PER KILOGRAM, QW
     Route: 058
     Dates: start: 20120611, end: 20120618
  5. PEGINTRON [Suspect]
     Dosage: 0.3 MICROGRAM PER KILOGRAM, QW
     Route: 058
     Dates: start: 20120625, end: 20120625
  6. PEGINTRON [Suspect]
     Dosage: 0.22 MICROGRAM PER KILOGRAM, QW
     Route: 058
     Dates: start: 20120702, end: 20120813
  7. REBETOL [Suspect]
     Indication: HEPATITIS C
     Dosage: 800 MG, QD
     Route: 048
     Dates: start: 20120305, end: 20120325
  8. REBETOL [Suspect]
     Dosage: 400 MG, QD
     Route: 048
     Dates: start: 20120326, end: 20120408
  9. REBETOL [Suspect]
     Dosage: 200 MG, QD
     Route: 048
     Dates: start: 20120409, end: 20120819
  10. TELAVIC [Suspect]
     Indication: HEPATITIS C
     Dosage: 2250 MG, QD
     Route: 048
     Dates: start: 20120305, end: 20120501
  11. TELAVIC [Suspect]
     Dosage: 1500 MG, QD
     Route: 048
     Dates: start: 20120502, end: 20120528
  12. ADALAT CR [Suspect]
     Indication: HYPERTENSION
     Dosage: FORMULATION- POR, [OTHER PURPOSES] COMPLICATION, ADVANCED EVENT
     Route: 048
     Dates: end: 20120610
  13. LIVALO [Suspect]
     Indication: HYPERLIPIDAEMIA
     Dosage: FORMULATION- POR, [OTHER PURPOSES] COMPLICATION, ADVANCED EVENT
     Route: 048
     Dates: end: 20120610
  14. URALYT [Suspect]
     Indication: HYPERURICAEMIA
     Dosage: 6 DF, QD, [OTHER PURPOSES] COMPLICATION, ADVANCED EVENT
     Route: 048
     Dates: start: 20120319, end: 20120610
  15. BLOPRESS [Concomitant]
     Indication: HYPERTENSION
     Dosage: FORMULATION : POR
     Route: 048
  16. MYSLEE [Concomitant]
     Indication: INSOMNIA
     Dosage: FORMULATION- POR
     Route: 048
     Dates: end: 20120513
  17. URSO [Concomitant]
     Indication: HEPATITIS C
     Dosage: FORMULATION :POR
     Route: 048
     Dates: start: 20120402, end: 20120624
  18. URSO [Concomitant]
     Dosage: 600 MG, QD
     Route: 048
     Dates: start: 20120625
  19. SALIVEHT [Concomitant]
     Indication: ORAL DISCOMFORT
     Dosage: UPDATE (6JUN2012)
     Route: 048
     Dates: start: 20120316, end: 20120325
  20. GASTER D [Concomitant]
     Dosage: FORMULATION : POR
     Route: 048
     Dates: start: 20120607

REACTIONS (5)
  - Rash [Not Recovered/Not Resolved]
  - Rash [Recovering/Resolving]
  - Blood creatinine increased [Not Recovered/Not Resolved]
  - Hyperuricaemia [Recovering/Resolving]
  - Rash [Not Recovered/Not Resolved]
